FAERS Safety Report 11072934 (Version 2)
Quarter: 2015Q2

REPORT INFORMATION
  Report Type: Report from Study
  Country: GB (occurrence: GB)
  Receive Date: 20150428
  Receipt Date: 20150619
  Transmission Date: 20150821
  Serious: Yes (Other)
  Sender: FDA-Public Use
  Company Number: GB-LEO PHARMA-234034

PATIENT
  Age: 64 Year
  Sex: Male

DRUGS (2)
  1. WARFARIN [Concomitant]
     Active Substance: WARFARIN
     Indication: PRODUCT USED FOR UNKNOWN INDICATION
  2. PICATO [Suspect]
     Active Substance: INGENOL MEBUTATE
     Indication: ACTINIC KERATOSIS
     Route: 061
     Dates: start: 20150416, end: 20150418

REACTIONS (8)
  - Dry eye [Recovered/Resolved]
  - Application site vesicles [Recovered/Resolved]
  - Application site scab [Recovered/Resolved]
  - Cough [Recovered/Resolved]
  - Application site pustules [Recovered/Resolved]
  - Hypersensitivity [Recovered/Resolved]
  - Application site pain [Recovered/Resolved]
  - Infection [Recovered/Resolved]

NARRATIVE: CASE EVENT DATE: 20150416
